FAERS Safety Report 8281249-7 (Version None)
Quarter: 2012Q2

REPORT INFORMATION
  Report Type: 
  Country: None (occurrence: None)
  Receive Date: 20120413
  Receipt Date: 20120403
  Transmission Date: 20120825
  Serious: Yes (Other)
  Sender: FDA-Public Use
  Company Number: JP-BRISTOL-MYERS SQUIBB COMPANY-16504615

PATIENT
  Sex: Female

DRUGS (1)
  1. METFORMIN HCL [Suspect]
     Indication: DIABETES MELLITUS
     Dosage: 500MG(2 WKS) INCREASED TO 1000MG
     Route: 048

REACTIONS (5)
  - DYSPNOEA [None]
  - DIARRHOEA [None]
  - PALPITATIONS [None]
  - CHEST PAIN [None]
  - DECREASED APPETITE [None]
